FAERS Safety Report 10074172 (Version 1)
Quarter: 2014Q2

REPORT INFORMATION
  Report Type: Spontaneous
  Country: DE (occurrence: DE)
  Receive Date: 20140413
  Receipt Date: 20140413
  Transmission Date: 20141212
  Serious: Yes (Death, Hospitalization, Other)
  Sender: FDA-Public Use
  Company Number: DE-AMGEN-DEUSP2014024763

PATIENT
  Age: 33 Year
  Sex: Female
  Weight: 95 kg

DRUGS (5)
  1. NPLATE [Suspect]
     Indication: IMMUNE THROMBOCYTOPENIC PURPURA
     Dosage: 90 MUG, QWK
     Route: 058
     Dates: start: 201109
  2. PANTOZOL                           /01263204/ [Concomitant]
     Indication: PROPHYLAXIS
     Dosage: 40 MG X 1
     Route: 042
     Dates: start: 20140313, end: 20140326
  3. DEXAMETHASONE [Concomitant]
     Indication: IMMUNE THROMBOCYTOPENIC PURPURA
     Dosage: 10 MG, X 1
     Route: 042
     Dates: start: 20140313, end: 20140326
  4. MABTHERA [Concomitant]
     Indication: IMMUNE THROMBOCYTOPENIC PURPURA
     Dosage: 780 MG, X1
     Route: 042
     Dates: start: 20140321, end: 20140321
  5. PRIVIGEN [Concomitant]
     Indication: IMMUNE THROMBOCYTOPENIC PURPURA
     Dosage: 10 G X 1
     Route: 042
     Dates: start: 20140325, end: 20140326

REACTIONS (5)
  - Megakaryocytes decreased [Fatal]
  - Cerebral haemorrhage [Fatal]
  - Anaemia [Unknown]
  - Therapeutic response decreased [Unknown]
  - Platelet count decreased [Unknown]
